FAERS Safety Report 10759838 (Version 3)
Quarter: 2016Q2

REPORT INFORMATION
  Report Type: Spontaneous
  Country: US (occurrence: US)
  Receive Date: 20150203
  Receipt Date: 20160629
  Transmission Date: 20160815
  Serious: Yes (Hospitalization)
  Sender: FDA-Public Use
  Company Number: US-GLAXOSMITHKLINE-US2015GSK012928

PATIENT
  Sex: Female

DRUGS (3)
  1. BENLYSTA [Suspect]
     Active Substance: BELIMUMAB
     Indication: SYSTEMIC LUPUS ERYTHEMATOSUS
     Dosage: UNK, U
     Dates: start: 20120301, end: 201408
  2. BENLYSTA [Suspect]
     Active Substance: BELIMUMAB
     Dosage: 10MG/KG
     Dates: start: 20150129
  3. BENLYSTA [Suspect]
     Active Substance: BELIMUMAB
     Dosage: UNK, U
     Dates: start: 201410

REACTIONS (6)
  - Red blood cell count decreased [Recovering/Resolving]
  - Oligomenorrhoea [Recovering/Resolving]
  - Malaise [Unknown]
  - Drug dose omission [Unknown]
  - Menorrhagia [Recovering/Resolving]
  - Infection [Unknown]
